FAERS Safety Report 23963073 (Version 2)
Quarter: 2024Q3

REPORT INFORMATION
  Report Type: Spontaneous
  Country: FR (occurrence: FR)
  Receive Date: 20240611
  Receipt Date: 20240711
  Transmission Date: 20241017
  Serious: Yes (Other)
  Sender: MYLAN
  Company Number: FR-GRUNENTHAL-2024-119774

PATIENT
  Age: 62 Year
  Sex: Male

DRUGS (3)
  1. FENTANYL [Suspect]
     Active Substance: FENTANYL\FENTANYL CITRATE
     Indication: Pain
     Dosage: UNK
     Route: 065
  2. PECFENT [Suspect]
     Active Substance: FENTANYL CITRATE
     Indication: Back pain
     Dosage: 800 MICROGRAM, QD (100 MICROGRAM, 8/DAY)
     Route: 045
  3. PECFENT [Suspect]
     Active Substance: FENTANYL CITRATE
     Indication: Pain
     Dosage: UNK
     Route: 065

REACTIONS (4)
  - Drug dependence [Unknown]
  - Prescription drug used without a prescription [Recovered/Resolved]
  - Intentional product use issue [Unknown]
  - Overdose [Unknown]
